FAERS Safety Report 7820262-8 (Version None)
Quarter: 2011Q4

REPORT INFORMATION
  Report Type: 
  Country: None (occurrence: None)
  Receive Date: 20111018
  Receipt Date: 20110927
  Transmission Date: 20120403
  Serious: Yes (Other)
  Sender: FDA-Public Use
  Company Number: ES-ROCHE-1000346

PATIENT
  Sex: Female

DRUGS (2)
  1. BONIVA [Suspect]
     Indication: OSTEOPOROSIS
     Route: 048
     Dates: start: 20110902
  2. NATECAL D [Concomitant]
     Indication: OSTEOPOROSIS
     Dosage: 1500 MG/400 IU VITAMIN D
     Route: 048
     Dates: start: 20110904

REACTIONS (4)
  - ASTHENIA [None]
  - MALAISE [None]
  - MYALGIA [None]
  - CHEST PAIN [None]
